FAERS Safety Report 10370556 (Version 1)
Quarter: 2014Q1

REPORT INFORMATION
  Report Type: Spontaneous
  Country: US (occurrence: None)
  Receive Date: 20140306
  Receipt Date: 20140306
  Transmission Date: 20141002
  Serious: Yes (Other)
  Sender: FDA-Public Use
  Company Number: 163-21880-13011056

PATIENT
  Age: 81 Year
  Sex: Female

DRUGS (8)
  1. REVLIMID [Suspect]
     Indication: MYELODYSPLASTIC SYNDROME
     Route: 048
     Dates: start: 200709
  2. CALCIUM PLUS D (OS-CAL) (TABLETS) [Concomitant]
  3. ASPIRIN (ACETYLSALICYLIC ACID) (ENTERIC-COATED TABLET) [Concomitant]
  4. IMODIUM A-D (LOPERAMIDE HYDROCHLORIDE) (TABLETS) [Concomitant]
  5. AMOXICILLIN (AMOXICILLIN) (CAPSULES) [Concomitant]
  6. MULTIVITAMINS FOR HER (MULTIVITAMINS) (CAPSULES) [Concomitant]
  7. ACIDOPHILIS (LACTOBACILLUS ACIDOPHILUS) (CAPSULES) [Concomitant]
  8. DITROPAN (OXYBUTYNIN) (TABLETS) [Concomitant]

REACTIONS (1)
  - Neutropenia [None]
